FAERS Safety Report 25903996 (Version 1)
Quarter: 2025Q4

REPORT INFORMATION
  Report Type: Spontaneous
  Country: JP (occurrence: JP)
  Receive Date: 20251010
  Receipt Date: 20251010
  Transmission Date: 20260118
  Serious: Yes (Hospitalization, Other)
  Sender: MERCK SHARP & DOHME LLC
  Company Number: JP-009507513-2305165

PATIENT
  Age: 79 Year
  Sex: Female
  Weight: 45.2 kg

DRUGS (3)
  1. STROMECTOL [Suspect]
     Active Substance: IVERMECTIN
     Indication: Scabies
     Route: 048
     Dates: start: 20250529
  2. STROMECTOL [Suspect]
     Active Substance: IVERMECTIN
     Indication: Scabies
     Route: 048
     Dates: start: 20250605
  3. ATARAX [Suspect]
     Active Substance: HYDROXYZINE HYDROCHLORIDE
     Indication: Pruritus
     Route: 048
     Dates: start: 20250529, end: 20250619

REACTIONS (5)
  - Bullous haemorrhagic dermatosis [Unknown]
  - Stevens-Johnson syndrome [Recovered/Resolved]
  - Lip erosion [Unknown]
  - Rash [Unknown]
  - Skin erosion [Unknown]

NARRATIVE: CASE EVENT DATE: 20250626
